FAERS Safety Report 7503144-0 (Version None)
Quarter: 2011Q2

REPORT INFORMATION
  Report Type: 
  Country: None (occurrence: None)
  Receive Date: 20110525
  Receipt Date: 20101025
  Transmission Date: 20111010
  Serious: No
  Sender: FDA-Public Use
  Company Number: US-NOVEN-ALL1-2010-05556

PATIENT
  Sex: Female
  Weight: 47.166 kg

DRUGS (1)
  1. DAYTRANA [Suspect]
     Dosage: UNK MG, 1X/DAY:QD (1/6 OF A 30 MG PATCH)
     Route: 062
     Dates: start: 20090101

REACTIONS (4)
  - WRONG TECHNIQUE IN DRUG USAGE PROCESS [None]
  - DRUG PRESCRIBING ERROR [None]
  - PRODUCT QUALITY ISSUE [None]
  - NO ADVERSE EVENT [None]
